FAERS Safety Report 7893674-4 (Version None)
Quarter: 2011Q4

REPORT INFORMATION
  Report Type: 
  Country: None (occurrence: None)
  Receive Date: 20111104
  Receipt Date: 20111028
  Transmission Date: 20120403
  Serious: Yes (Other)
  Sender: FDA-Public Use
  Company Number: US-JNJFOC-20111100001

PATIENT
  Sex: Male
  Weight: 90.72 kg

DRUGS (6)
  1. COUMADIN [Concomitant]
     Indication: BLOOD DISORDER
     Route: 048
     Dates: start: 20090101
  2. TRAMADOL HCL [Suspect]
     Indication: HEADACHE
     Dosage: ONCE A DAY
     Route: 048
     Dates: start: 20100101, end: 20100101
  3. TRAMADOL HCL [Suspect]
     Dosage: ONCE A DAY
     Route: 048
     Dates: start: 20100101, end: 20110701
  4. TRAMADOL HCL [Suspect]
     Indication: HEADACHE
     Dosage: ONCE A DAY
     Route: 048
     Dates: start: 20110701
  5. PLAVIX [Concomitant]
     Indication: BLOOD CHOLESTEROL ABNORMAL
     Dosage: ONCE A DAY
     Route: 048
     Dates: start: 20090101
  6. LIPITOR [Suspect]
     Indication: BLOOD CHOLESTEROL ABNORMAL
     Route: 048
     Dates: start: 20110101, end: 20110101

REACTIONS (7)
  - LOSS OF CONSCIOUSNESS [None]
  - DIZZINESS [None]
  - PRODUCT QUALITY ISSUE [None]
  - FALL [None]
  - BREAKTHROUGH PAIN [None]
  - LACERATION [None]
  - HYPERTENSION [None]
